FAERS Safety Report 5738746-5 (Version None)
Quarter: 2008Q2

REPORT INFORMATION
  Report Type: 
  Country: None (occurrence: None)
  Receive Date: 20080512
  Receipt Date: 20080512
  Transmission Date: 20081010
  Serious: Yes (Life-Threatening)
  Sender: FDA-Public Use
  Company Number: None

PATIENT
  Age: 38 Year
  Sex: Male
  Weight: 127.0072 kg

DRUGS (1)
  1. INVEGA [Suspect]

REACTIONS (26)
  - BLOOD PRESSURE INCREASED [None]
  - BRAIN INJURY [None]
  - CARDIAC DISORDER [None]
  - CONFUSIONAL STATE [None]
  - DRUG WITHDRAWAL SYNDROME [None]
  - DRY MOUTH [None]
  - DYSGEUSIA [None]
  - DYSKINESIA [None]
  - EYE DISORDER [None]
  - EYE ROLLING [None]
  - FATIGUE [None]
  - FEELING ABNORMAL [None]
  - HEART RATE INCREASED [None]
  - HYPERPHAGIA [None]
  - INSOMNIA [None]
  - MUSCLE SPASMS [None]
  - MUSCLE TWITCHING [None]
  - NAUSEA [None]
  - ORAL INTAKE REDUCED [None]
  - PAIN [None]
  - POLLAKIURIA [None]
  - POLYDIPSIA [None]
  - RETCHING [None]
  - TREMOR [None]
  - VOMITING [None]
  - WEIGHT INCREASED [None]
